FAERS Safety Report 6598048-4 (Version None)
Quarter: 2010Q1

REPORT INFORMATION
  Report Type: 
  Country: None (occurrence: None)
  Receive Date: 20100216
  Receipt Date: 20100204
  Transmission Date: 20100710
  Serious: Yes (Life-Threatening, Other)
  Sender: FDA-Public Use
  Company Number: 2010AL000748

PATIENT
  Age: 30 Year
  Sex: Female

DRUGS (1)
  1. CETIRIZINE HCL [Suspect]
     Indication: URTICARIA
     Dosage: 10 MG; HS; PO
     Route: 048

REACTIONS (5)
  - ANAPHYLACTIC SHOCK [None]
  - APHASIA [None]
  - DISORIENTATION [None]
  - LOSS OF CONSCIOUSNESS [None]
  - RESTLESSNESS [None]
